FAERS Safety Report 16927083 (Version 3)
Quarter: 2020Q1

REPORT INFORMATION
  Report Type: Spontaneous
  Country: JP (occurrence: JP)
  Receive Date: 20191016
  Receipt Date: 20200116
  Transmission Date: 20200409
  Serious: Yes (Hospitalization, Other)
  Sender: FDA-Public Use
  Company Number: JP-BRISTOL-MYERS SQUIBB COMPANY-BMS-2019-089180

PATIENT
  Age: 66 Year
  Sex: Female
  Weight: 38 kg

DRUGS (7)
  1. LINZESS [Concomitant]
     Active Substance: LINACLOTIDE
     Indication: PRODUCT USED FOR UNKNOWN INDICATION
     Dosage: 0.25 MILLIGRAM, QD
     Route: 048
     Dates: start: 20190508
  2. TAKECAB [Concomitant]
     Active Substance: VONOPRAZAN FUMURATE
     Indication: PRODUCT USED FOR UNKNOWN INDICATION
     Dosage: 10 MILLIGRAM, QD
     Route: 048
     Dates: start: 20190510
  3. OPDIVO [Suspect]
     Active Substance: NIVOLUMAB
     Indication: GASTRIC CANCER
     Dosage: 240 MG, Q2W
     Route: 041
     Dates: start: 20190910, end: 20190910
  4. RINDERON [BETAMETHASONE ACETATE;BETAMETHASONE SODIUM PHOSPHATE] [Concomitant]
     Active Substance: BETAMETHASONE ACETATE\BETAMETHASONE SODIUM PHOSPHATE
     Indication: PRODUCT USED FOR UNKNOWN INDICATION
     Dosage: 2 MILLIGRAM, QD
     Route: 041
     Dates: start: 20190910, end: 20190911
  5. SENNOSIDE A+B CALCIUM [Concomitant]
     Active Substance: SENNOSIDES A AND B
     Indication: PRODUCT USED FOR UNKNOWN INDICATION
     Dosage: 12 MILLIGRAM
     Route: 048
     Dates: start: 20190503
  6. SALINE [SODIUM CHLORIDE] [Concomitant]
     Active Substance: SODIUM CHLORIDE
     Indication: GASTRIC CANCER
     Dosage: 140 MILLILITER
     Route: 041
     Dates: start: 20190910
  7. ELNEOPA NF NO.2 [Concomitant]
     Indication: GASTRIC CANCER
     Dosage: 1000 MILLILITER, QD
     Route: 041
     Dates: start: 20190910, end: 20190911

REACTIONS (7)
  - Drug-device incompatibility [Unknown]
  - Malignant neoplasm progression [Unknown]
  - Sepsis [Unknown]
  - Hepatic function abnormal [Recovered/Resolved]
  - Gastric disorder [Recovering/Resolving]
  - Diarrhoea [Recovering/Resolving]
  - Lymphocyte count decreased [Unknown]

NARRATIVE: CASE EVENT DATE: 20190910
